FAERS Safety Report 21894933 (Version 1)
Quarter: 2023Q1

REPORT INFORMATION
  Report Type: Spontaneous
  Country: US (occurrence: US)
  Receive Date: 20230122
  Receipt Date: 20230122
  Transmission Date: 20230418
  Serious: Yes (Other)
  Sender: FDA-Public Use
  Company Number: US-BEH-2023154381

PATIENT
  Sex: Male

DRUGS (35)
  1. HIZENTRA [Suspect]
     Active Substance: HUMAN IMMUNOGLOBULIN G
     Indication: Immunodeficiency common variable
     Dosage: 12 GRAM, QW
     Route: 058
     Dates: start: 20221004
  2. AMARYL [Concomitant]
     Active Substance: GLIMEPIRIDE
     Dosage: 1 MILLIGRAM
  3. ASPIRIN [Concomitant]
     Active Substance: ASPIRIN
     Dosage: 81 MILLIGRAM
  4. BUDESONIDE [Concomitant]
     Active Substance: BUDESONIDE
  5. BUPROPION HYDROCHLORIDE [Concomitant]
     Active Substance: BUPROPION HYDROCHLORIDE
     Dosage: 150 MILLIGRAM
  6. CLONIDINE [Concomitant]
     Active Substance: CLONIDINE
     Dosage: 0.1 MILLIGRAM
  7. EPINEPHRINE [Concomitant]
     Active Substance: EPINEPHRINE
  8. FLUOXETINE [Concomitant]
     Active Substance: FLUOXETINE HYDROCHLORIDE
     Dosage: 10 MILLIGRAM
  9. GLIMEPIRIDE [Concomitant]
     Active Substance: GLIMEPIRIDE
     Dosage: 4 MILLIGRAM
  10. HYDROCHLOROTHIAZIDE [Concomitant]
     Active Substance: HYDROCHLOROTHIAZIDE
     Dosage: 12.5 MILLIGRAM
  11. HYDROCHLOROTHIAZIDE [Concomitant]
     Active Substance: HYDROCHLOROTHIAZIDE
     Dosage: 25 UNK
  12. JANUVIA [Concomitant]
     Active Substance: SITAGLIPTIN PHOSPHATE
     Dosage: 100 MILLIGRAM
  13. JANUVIA [Concomitant]
     Active Substance: SITAGLIPTIN PHOSPHATE
     Dosage: 25 UNK
  14. LANTUS [Concomitant]
     Active Substance: INSULIN GLARGINE
     Dosage: 100 MILLILITER
  15. LINZESS [Concomitant]
     Active Substance: LINACLOTIDE
     Dosage: 290 MICROGRAM
  16. LOSARTAN POTASSIUM [Concomitant]
     Active Substance: LOSARTAN POTASSIUM
     Dosage: 100 MILLIGRAM
  17. LOSARTAN POTASSIUM [Concomitant]
     Active Substance: LOSARTAN POTASSIUM
     Dosage: 25 UNK
  18. HYDROCHLOROTHIAZIDE\LOSARTAN POTASSIUM [Concomitant]
     Active Substance: HYDROCHLOROTHIAZIDE\LOSARTAN POTASSIUM
  19. METHYLPHENIDATE [Concomitant]
     Active Substance: METHYLPHENIDATE
     Dosage: 10 MILLIGRAM
  20. METHYLPHENIDATE [Concomitant]
     Active Substance: METHYLPHENIDATE
     Dosage: 20 UNK
  21. MORPHINE SULFATE [Concomitant]
     Active Substance: MORPHINE SULFATE
     Dosage: 15 MILLIGRAM
  22. MORPHINE SULFATE [Concomitant]
     Active Substance: MORPHINE SULFATE
     Dosage: 60 UNK
  23. OXYCONTIN [Concomitant]
     Active Substance: OXYCODONE HYDROCHLORIDE
  24. PANTOPRAZOLE [Concomitant]
     Active Substance: PANTOPRAZOLE
     Dosage: 40 MILLIGRAM
  25. PENTASA [Concomitant]
     Active Substance: MESALAMINE
     Dosage: 500 MILLIGRAM
  26. POTASSIUM CITRATE [Concomitant]
     Active Substance: POTASSIUM CITRATE
     Dosage: 1080 MILLIGRAM
  27. POTASSIUM CITRATE [Concomitant]
     Active Substance: POTASSIUM CITRATE
  28. PRAVASTATIN [Concomitant]
     Active Substance: PRAVASTATIN
     Dosage: 10 MILLIGRAM
  29. PRAVASTATIN [Concomitant]
     Active Substance: PRAVASTATIN
     Dosage: 20 UNK
  30. PREDNISONE [Concomitant]
     Active Substance: PREDNISONE
     Dosage: 20 MILLIGRAM
  31. PREDNISONE [Concomitant]
     Active Substance: PREDNISONE
     Dosage: 5 UNK
  32. PROTONIX [Concomitant]
     Active Substance: PANTOPRAZOLE SODIUM
     Dosage: 20 MILLIGRAM
  33. TESTOSTERONE [Concomitant]
     Active Substance: TESTOSTERONE
  34. CHOLECALCIFEROL [Concomitant]
     Active Substance: CHOLECALCIFEROL
  35. WELLBUTRIN [Concomitant]
     Active Substance: BUPROPION HYDROCHLORIDE
     Dosage: 100 MILLIGRAM

REACTIONS (1)
  - Hypersomnia-bulimia syndrome [Not Recovered/Not Resolved]
